FAERS Safety Report 16091385 (Version 2)
Quarter: 2019Q2

REPORT INFORMATION
  Report Type: Spontaneous
  Country: US (occurrence: US)
  Receive Date: 20190319
  Receipt Date: 20190522
  Transmission Date: 20190711
  Serious: Yes (Hospitalization)
  Sender: FDA-Public Use
  Company Number: US-ENDO PHARMACEUTICALS INC-2019-102893

PATIENT
  Sex: Female
  Weight: 81.65 kg

DRUGS (1)
  1. DOXAZOSIN MESYLATE. [Suspect]
     Active Substance: DOXAZOSIN MESYLATE
     Indication: PRODUCT USED FOR UNKNOWN INDICATION
     Dosage: 2 MG, QHS (1 TABLET EVERY NIGHT AT BEDTIME)
     Route: 048
     Dates: start: 20150929

REACTIONS (3)
  - Loss of consciousness [Unknown]
  - Dysarthria [Unknown]
  - Swollen tongue [Unknown]
